FAERS Safety Report 7416755-8 (Version None)
Quarter: 2011Q2

REPORT INFORMATION
  Report Type: 
  Country: None (occurrence: None)
  Receive Date: 20110415
  Receipt Date: 20110407
  Transmission Date: 20111010
  Serious: No
  Sender: FDA-Public Use
  Company Number: US-BIOGENIDEC-2011BI012958

PATIENT
  Sex: Female

DRUGS (3)
  1. AVONEX [Suspect]
     Indication: MULTIPLE SCLEROSIS
     Route: 030
     Dates: start: 20030801
  2. AVONEX [Suspect]
     Route: 030
     Dates: start: 19980801, end: 20030801
  3. BLOOD PRESSURE MEDICATION (NOS) [Concomitant]
     Indication: HYPERTENSION

REACTIONS (5)
  - MENISCUS LESION [None]
  - ARTERIOSPASM CORONARY [None]
  - CRYING [None]
  - ARTHRALGIA [None]
  - FALL [None]
